FAERS Safety Report 7910158-5 (Version None)
Quarter: 2011Q4

REPORT INFORMATION
  Report Type: 
  Country: None (occurrence: None)
  Receive Date: 20111111
  Receipt Date: 20111109
  Transmission Date: 20120403
  Serious: Yes (Hospitalization, Other)
  Sender: FDA-Public Use
  Company Number: US-ABBOTT-04P-163-0250383-00

PATIENT
  Sex: Male
  Weight: 95.34 kg

DRUGS (14)
  1. VITAMIN TAB [Concomitant]
     Indication: PRODUCT USED FOR UNKNOWN INDICATION
     Route: 048
  2. MULTI-VITAMIN [Concomitant]
     Indication: VITAMIN SUPPLEMENTATION
  3. WATER PILL [Concomitant]
     Indication: FLUID RETENTION
     Route: 048
  4. LISINOPRIL [Concomitant]
     Indication: HYPERTENSION
  5. PREDNISONE TAB [Concomitant]
     Indication: RHEUMATOID ARTHRITIS
     Dosage: DAILY
     Route: 048
  6. HALDOL [Concomitant]
     Indication: PRODUCT USED FOR UNKNOWN INDICATION
  7. RESPERIDOL [Concomitant]
     Indication: PRODUCT USED FOR UNKNOWN INDICATION
  8. VITAMIN E [Concomitant]
     Indication: PRODUCT USED FOR UNKNOWN INDICATION
  9. HUMIRA [Suspect]
     Indication: RHEUMATOID ARTHRITIS
     Dosage: 3-4 INJECTIONS TAKEN
     Route: 058
     Dates: start: 20030101, end: 20040217
  10. LORTAB [Concomitant]
     Indication: PAIN
     Dosage: 1-2 TABS EVERY 6 HOURS, AS NEEDED
  11. MOBIC [Concomitant]
     Indication: RHEUMATOID ARTHRITIS
  12. IRON [Concomitant]
     Indication: PRODUCT USED FOR UNKNOWN INDICATION
  13. CELEBREX [Concomitant]
     Indication: RHEUMATOID ARTHRITIS
     Dosage: DAILY
     Route: 048
  14. PAIN PILL [Concomitant]
     Indication: PAIN
     Route: 048

REACTIONS (44)
  - GUILLAIN-BARRE SYNDROME [None]
  - EMOTIONAL DISTRESS [None]
  - POLLAKIURIA [None]
  - LETHARGY [None]
  - HYPOKINESIA [None]
  - CELLULITIS [None]
  - MUSCULAR WEAKNESS [None]
  - ACTIVITIES OF DAILY LIVING IMPAIRED [None]
  - INFECTION [None]
  - VISION BLURRED [None]
  - ERYTHEMA [None]
  - PULSE PRESSURE DECREASED [None]
  - ABASIA [None]
  - SKIN GRAFT [None]
  - SKIN GRAFT FAILURE [None]
  - UNEVALUABLE EVENT [None]
  - DYSPEPSIA [None]
  - HISTIOCYTIC NECROTISING LYMPHADENITIS [None]
  - PARAESTHESIA [None]
  - DRUG INEFFECTIVE [None]
  - OEDEMA PERIPHERAL [None]
  - NIGHT SWEATS [None]
  - SKIN DISCOLOURATION [None]
  - ARTHRALGIA [None]
  - FACIAL PARESIS [None]
  - DYSARTHRIA [None]
  - GRIP STRENGTH DECREASED [None]
  - SENSORY DISTURBANCE [None]
  - WOUND INFECTION [None]
  - HYPOAESTHESIA [None]
  - VITILIGO [None]
  - BACK PAIN [None]
  - PAIN IN EXTREMITY [None]
  - MICTURITION URGENCY [None]
  - HYPOACUSIS [None]
  - MULTIPLE SCLEROSIS [None]
  - ARTHROPATHY [None]
  - ASTHENIA [None]
  - FUNGATING WOUND [None]
  - RASH [None]
  - LOCALISED INFECTION [None]
  - ABSCESS LIMB [None]
  - PAIN [None]
  - CORNEAL SCAR [None]
